FAERS Safety Report 9744609 (Version 1)
Quarter: 2013Q4

REPORT INFORMATION
  Report Type: Spontaneous
  Country: US (occurrence: US)
  Receive Date: 20131210
  Receipt Date: 20131210
  Transmission Date: 20140711
  Serious: Yes (Other)
  Sender: FDA-Public Use
  Company Number: US-CELGENEUS-163-POMAL-13121113

PATIENT
  Sex: Female
  Weight: 54.48 kg

DRUGS (1)
  1. POMALYST [Suspect]
     Indication: PLASMA CELL MYELOMA
     Dosage: 3 MILLIGRAM
     Route: 048
     Dates: start: 20130918

REACTIONS (3)
  - Hallucination [Unknown]
  - Urine odour abnormal [Unknown]
  - Drug ineffective [Unknown]
